FAERS Safety Report 14740376 (Version 1)
Quarter: 2018Q2

REPORT INFORMATION
  Report Type: Report from Study
  Country: US (occurrence: US)
  Receive Date: 20180410
  Receipt Date: 20180410
  Transmission Date: 20180711
  Serious: Yes (Hospitalization, Other)
  Sender: FDA-Public Use
  Company Number: PHHO2016US015103

PATIENT
  Age: 39 Year
  Sex: Female
  Weight: 57.9 kg

DRUGS (5)
  1. DEXAMETHASONE. [Concomitant]
     Active Substance: DEXAMETHASONE
     Indication: LYMPHOMA
     Dosage: 100 MG, QD 2 DAYS
     Route: 048
     Dates: start: 20161123, end: 20161124
  2. BENDAMUSTINE [Concomitant]
     Active Substance: BENDAMUSTINE
     Indication: CHEMOTHERAPY
     Dosage: 142 MG, QD (142 MG IN 50 ML OF NSS IV DAILY X 2DAYS)
     Route: 042
     Dates: start: 20161006
  3. PREDNISONE. [Concomitant]
     Active Substance: PREDNISONE
     Indication: LYMPHOMA
     Dosage: 60 MG, QD
     Route: 048
     Dates: start: 20161003
  4. KYMRIAH [Suspect]
     Active Substance: TISAGENLECLEUCEL
     Indication: DIFFUSE LARGE B-CELL LYMPHOMA
     Dosage: 5.2487X10E8 INDUCED CAR T-CELLS
     Route: 042
     Dates: start: 20161013, end: 20161013
  5. NIVOLUMAB [Suspect]
     Active Substance: NIVOLUMAB
     Indication: LYMPHOMA
     Dosage: 160 MG, IN 100 CC NSS
     Route: 042
     Dates: start: 20161125, end: 20161125

REACTIONS (4)
  - Large intestinal obstruction [Not Recovered/Not Resolved]
  - Cytokine release syndrome [Recovered/Resolved]
  - Cytokine release syndrome [Recovered/Resolved]
  - Urinary tract obstruction [Not Recovered/Not Resolved]

NARRATIVE: CASE EVENT DATE: 20161013
